FAERS Safety Report 25728739 (Version 1)
Quarter: 2025Q3

REPORT INFORMATION
  Report Type: Spontaneous
  Country: US (occurrence: US)
  Receive Date: 20250826
  Receipt Date: 20250826
  Transmission Date: 20251021
  Serious: Yes (Other)
  Sender: APELLIS PHARMACEUTICALS
  Company Number: US-APELLIS PHARMACEUTICALS-APL-2023-002383

PATIENT

DRUGS (2)
  1. SYFOVRE [Suspect]
     Active Substance: PEGCETACOPLAN
     Indication: Dry age-related macular degeneration
     Route: 031
     Dates: start: 20230428
  2. EYLEA [Concomitant]
     Active Substance: AFLIBERCEPT
     Indication: Neovascular age-related macular degeneration
     Route: 031

REACTIONS (8)
  - Haemorrhagic occlusive retinal vasculitis [Unknown]
  - Visual impairment [Not Recovered/Not Resolved]
  - Hypotony of eye [Unknown]
  - Corneal oedema [Unknown]
  - Endophthalmitis [Unknown]
  - Uveitis [Unknown]
  - Eye pain [Recovering/Resolving]
  - Intraocular pressure increased [Unknown]

NARRATIVE: CASE EVENT DATE: 20230101
